APPROVED DRUG PRODUCT: OGSIVEO
Active Ingredient: NIROGACESTAT HYDROBROMIDE
Strength: EQ 150MG BASE
Dosage Form/Route: TABLET;ORAL
Application: N217677 | Product #003
Applicant: SPRINGWORKS THERAPEUTICS INC
Approved: Apr 4, 2024 | RLD: Yes | RS: Yes | Type: RX

PATENTS:
Patent 12138246 | Expires: May 19, 2043
Patent 12011435 | Expires: May 19, 2043
Patent 12011434 | Expires: May 19, 2043
Patent 11957662 | Expires: May 19, 2043
Patent 11951096 | Expires: May 19, 2043
Patent 11938116 | Expires: May 19, 2043
Patent 11925620 | Expires: May 19, 2043
Patent 11925619 | Expires: May 19, 2043
Patent 12036207 | Expires: May 19, 2043
Patent 11872211 | Expires: May 19, 2043
Patent 11845732 | Expires: Aug 9, 2039
Patent 11844780 | Expires: Sep 8, 2042
Patent 11807611 | Expires: Sep 8, 2042
Patent 11612588 | Expires: Jul 8, 2042
Patent 10941118 | Expires: Aug 9, 2039
Patent 10710966 | Expires: Aug 9, 2039
Patent 11820748 | Expires: Aug 9, 2039
Patent 7795447 | Expires: Aug 18, 2030
Patent 11905255 | Expires: Aug 9, 2039
Patent 12116347 | Expires: Aug 9, 2039
Patent 11884635 | Expires: Aug 9, 2039
Patent 11884634 | Expires: Aug 9, 2039
Patent 10590087 | Expires: Aug 9, 2039
Patent 12110277 | Expires: Jul 8, 2042
Patent 12247012 | Expires: Jul 8, 2042
Patent 12234210 | Expires: Jul 8, 2042
Patent 11504354 | Expires: Jul 8, 2042
Patent 12297177 | Expires: Aug 9, 2039

EXCLUSIVITY:
Code: NCE | Date: Nov 27, 2028
Code: ODE* | Date: Nov 27, 2030